FAERS Safety Report 7589785-3 (Version None)
Quarter: 2011Q3

REPORT INFORMATION
  Report Type: 
  Country: None (occurrence: None)
  Receive Date: 20110705
  Receipt Date: 20110629
  Transmission Date: 20111222
  Serious: Yes (Hospitalization)
  Sender: FDA-Public Use
  Company Number: US-SANOFI-AVENTIS-2011SA041473

PATIENT
  Age: 70 Year
  Sex: Female
  Weight: 122 kg

DRUGS (13)
  1. ULTRAM [Concomitant]
  2. XANAX [Concomitant]
  3. TIAZAC [Concomitant]
  4. SPIRIVA [Concomitant]
  5. VICODIN [Concomitant]
  6. ZESTRIL [Concomitant]
  7. DEMADEX [Concomitant]
  8. ASPIRIN [Suspect]
     Route: 048
     Dates: start: 20110516
  9. NEURONTIN [Concomitant]
  10. POTASSIUM CHLORIDE [Concomitant]
  11. PLAVIX [Suspect]
     Route: 048
     Dates: start: 20110516, end: 20110622
  12. TOPROL-XL [Concomitant]
  13. ALBUTEROL SULFATE AUTOHALER [Concomitant]

REACTIONS (3)
  - COLITIS [None]
  - ABDOMINAL PAIN [None]
  - LARGE INTESTINE PERFORATION [None]
